FAERS Safety Report 8110976-7 (Version None)
Quarter: 2012Q1

REPORT INFORMATION
  Report Type: 
  Country: None (occurrence: None)
  Receive Date: 20120203
  Receipt Date: 20110113
  Transmission Date: 20120608
  Serious: No
  Sender: FDA-Public Use
  Company Number: US-GLAXOSMITHKLINE-A0907732A

PATIENT
  Sex: Male

DRUGS (2)
  1. SUPPLEMENT [Concomitant]
     Indication: MUSCLE DISORDER
  2. LAMICTAL [Suspect]
     Indication: BIPOLAR DISORDER
     Route: 048

REACTIONS (1)
  - RASH VESICULAR [None]
